FAERS Safety Report 25412892 (Version 1)
Quarter: 2025Q2

REPORT INFORMATION
  Report Type: Spontaneous
  Country: JP (occurrence: JP)
  Receive Date: 20250609
  Receipt Date: 20250609
  Transmission Date: 20250717
  Serious: Yes (Other)
  Sender: MYLAN
  Company Number: JP-VIATRISJAPAN-2025M1047714AA

PATIENT
  Age: 8 Decade
  Sex: Female

DRUGS (32)
  1. LYRICA [Suspect]
     Active Substance: PREGABALIN
     Indication: Back pain
  2. LYRICA [Suspect]
     Active Substance: PREGABALIN
     Route: 065
  3. LYRICA [Suspect]
     Active Substance: PREGABALIN
     Route: 065
  4. LYRICA [Suspect]
     Active Substance: PREGABALIN
  5. OLANZAPINE [Suspect]
     Active Substance: OLANZAPINE
     Indication: Dementia
  6. OLANZAPINE [Suspect]
     Active Substance: OLANZAPINE
     Route: 065
  7. OLANZAPINE [Suspect]
     Active Substance: OLANZAPINE
     Route: 065
  8. OLANZAPINE [Suspect]
     Active Substance: OLANZAPINE
  9. ANHIBA [Suspect]
     Active Substance: ACETAMINOPHEN
     Indication: Back pain
  10. ANHIBA [Suspect]
     Active Substance: ACETAMINOPHEN
     Route: 065
  11. ANHIBA [Suspect]
     Active Substance: ACETAMINOPHEN
     Route: 065
  12. ANHIBA [Suspect]
     Active Substance: ACETAMINOPHEN
  13. HERBALS [Suspect]
     Active Substance: HERBALS
     Indication: Dementia
  14. HERBALS [Suspect]
     Active Substance: HERBALS
     Route: 065
  15. HERBALS [Suspect]
     Active Substance: HERBALS
     Route: 065
  16. HERBALS [Suspect]
     Active Substance: HERBALS
  17. ARIPIPRAZOLE [Suspect]
     Active Substance: ARIPIPRAZOLE
     Indication: Dementia
  18. ARIPIPRAZOLE [Suspect]
     Active Substance: ARIPIPRAZOLE
     Route: 065
  19. ARIPIPRAZOLE [Suspect]
     Active Substance: ARIPIPRAZOLE
     Route: 065
  20. ARIPIPRAZOLE [Suspect]
     Active Substance: ARIPIPRAZOLE
  21. TRAMADOL [Suspect]
     Active Substance: TRAMADOL
     Indication: Back pain
  22. TRAMADOL [Suspect]
     Active Substance: TRAMADOL
     Route: 065
  23. TRAMADOL [Suspect]
     Active Substance: TRAMADOL
     Route: 065
  24. TRAMADOL [Suspect]
     Active Substance: TRAMADOL
  25. DONEPEZIL [Concomitant]
     Active Substance: DONEPEZIL
     Indication: Dementia
  26. DONEPEZIL [Concomitant]
     Active Substance: DONEPEZIL
     Route: 065
  27. DONEPEZIL [Concomitant]
     Active Substance: DONEPEZIL
     Route: 065
  28. DONEPEZIL [Concomitant]
     Active Substance: DONEPEZIL
  29. QUETIAPINE [Concomitant]
     Active Substance: QUETIAPINE
     Indication: Dementia
  30. QUETIAPINE [Concomitant]
     Active Substance: QUETIAPINE
     Route: 065
  31. QUETIAPINE [Concomitant]
     Active Substance: QUETIAPINE
     Route: 065
  32. QUETIAPINE [Concomitant]
     Active Substance: QUETIAPINE

REACTIONS (5)
  - Disease recurrence [Recovered/Resolved]
  - Dementia with Lewy bodies [Recovered/Resolved]
  - Psychotic disorder [Recovered/Resolved]
  - Drug ineffective [Unknown]
  - Off label use [Unknown]
